FAERS Safety Report 8580725-7 (Version None)
Quarter: 2012Q3

REPORT INFORMATION
  Report Type: 
  Country: None (occurrence: None)
  Receive Date: 20120809
  Receipt Date: 20120801
  Transmission Date: 20120928
  Serious: No
  Sender: FDA-Public Use
  Company Number: US-BIOGENIDEC-2012BI028846

PATIENT
  Sex: Male

DRUGS (3)
  1. TYSABRI [Suspect]
     Indication: MULTIPLE SCLEROSIS
     Route: 042
     Dates: start: 20090916, end: 20100925
  2. TYSABRI [Suspect]
     Route: 042
     Dates: start: 20101231, end: 20101231
  3. TYSABRI [Suspect]
     Route: 042
     Dates: start: 20120514

REACTIONS (2)
  - MUSCULOSKELETAL STIFFNESS [None]
  - HYPOAESTHESIA [None]
